FAERS Safety Report 12700980 (Version 6)
Quarter: 2016Q4

REPORT INFORMATION
  Report Type: Report from Study
  Country: JP (occurrence: JP)
  Receive Date: 20160831
  Receipt Date: 20161223
  Transmission Date: 20170207
  Serious: Yes (Hospitalization)
  Sender: FDA-Public Use
  Company Number: JP-AMGEN-JPNCT2016111452

PATIENT
  Age: 46 Year
  Sex: Female
  Weight: 59.5 kg

DRUGS (10)
  1. CYCLOPHOSPHAMIDE. [Concomitant]
     Active Substance: CYCLOPHOSPHAMIDE
     Dosage: UNK
     Dates: start: 20110607, end: 20110810
  2. CALCIUM [Concomitant]
     Active Substance: CALCIUM
     Dosage: 610 MG, UNK
     Route: 048
     Dates: start: 20121210, end: 20160730
  3. SENNOSIDE [Concomitant]
     Active Substance: SENNOSIDES
     Dosage: 12 TO 24 MG, UNK
     Route: 048
     Dates: start: 20110829, end: 20160829
  4. DENOSUMAB [Suspect]
     Active Substance: DENOSUMAB
     Indication: BREAST CANCER
     Dosage: 1.7 ML, UNK
     Route: 058
     Dates: start: 20110607, end: 20160309
  5. EPIRUBICIN [Concomitant]
     Active Substance: EPIRUBICIN
     Dosage: UNK
     Dates: start: 20110607, end: 20110810
  6. MAGNESIUM OXIDE. [Concomitant]
     Active Substance: MAGNESIUM OXIDE
     Dosage: 330 MG, UNK
     Route: 048
     Dates: start: 20110829
  7. LOXOPROFEN SODIUM HYDRATE [Concomitant]
     Active Substance: LOXOPROFEN SODIUM DIHYDRATE
     Dosage: 25 G AND 60 MG, UNK
     Route: 062
     Dates: start: 20140709, end: 20160914
  8. 5-FLUOROURACIL [Concomitant]
     Active Substance: FLUOROURACIL
     Dosage: UNK
     Dates: start: 20110607, end: 20110810
  9. VITAMIN D3 [Concomitant]
     Active Substance: CHOLECALCIFEROL
     Dosage: 400 MG, UNK
     Route: 048
     Dates: start: 20121210, end: 20160730
  10. DOCETAXEL. [Concomitant]
     Active Substance: DOCETAXEL
     Dosage: UNK
     Dates: start: 20110830, end: 20111102

REACTIONS (1)
  - Femur fracture [Not Recovered/Not Resolved]

NARRATIVE: CASE EVENT DATE: 20160821
